FAERS Safety Report 19956611 (Version 3)
Quarter: 2021Q4

REPORT INFORMATION
  Report Type: Spontaneous
  Country: US (occurrence: US)
  Receive Date: 20211014
  Receipt Date: 20211117
  Transmission Date: 20220303
  Serious: Yes (Other)
  Sender: FDA-Public Use
  Company Number: US-BAYER-2021A230619

PATIENT
  Age: 56 Year
  Sex: Male

DRUGS (3)
  1. JIVI [Suspect]
     Active Substance: DAMOCTOCOG ALFA PEGOL
     Dosage: 4000 IU, PRN
  2. JIVI [Suspect]
     Active Substance: DAMOCTOCOG ALFA PEGOL
     Dosage: 2 DF, FOR KNEE INJURY TREATMENT
     Dates: start: 20211007
  3. JIVI [Suspect]
     Active Substance: DAMOCTOCOG ALFA PEGOL
     Dosage: 4 DF, FOR BACK INJURY TREATMENT
     Dates: start: 202110

REACTIONS (2)
  - Joint injury [None]
  - Back pain [Recovering/Resolving]

NARRATIVE: CASE EVENT DATE: 20211001
